FAERS Safety Report 20521572 (Version 1)
Quarter: 2022Q1

REPORT INFORMATION
  Report Type: Spontaneous
  Country: US (occurrence: US)
  Receive Date: 20220226
  Receipt Date: 20220226
  Transmission Date: 20220423
  Serious: Yes (Other)
  Sender: FDA-Public Use
  Company Number: US-drreddys-LIT/USA/22/0147184

PATIENT
  Age: 61 Year
  Sex: Male

DRUGS (5)
  1. DAPTOMYCIN [Suspect]
     Active Substance: DAPTOMYCIN
     Indication: Pneumonia staphylococcal
  2. DAPTOMYCIN [Suspect]
     Active Substance: DAPTOMYCIN
     Indication: Staphylococcal bacteraemia
  3. DEXAMETHASONE SODIUM PHOSPHATE [Suspect]
     Active Substance: DEXAMETHASONE SODIUM PHOSPHATE
     Indication: COVID-19 pneumonia
  4. CEFTAROLINE [Suspect]
     Active Substance: CEFTAROLINE
     Indication: Pneumonia staphylococcal
  5. CEFTAROLINE [Suspect]
     Active Substance: CEFTAROLINE
     Indication: Staphylococcal bacteraemia

REACTIONS (4)
  - Pneumonia staphylococcal [Unknown]
  - Staphylococcal bacteraemia [Unknown]
  - Eosinophilic pneumonia [Unknown]
  - Product use in unapproved indication [Unknown]
